FAERS Safety Report 9513147 (Version 1)
Quarter: 2013Q1

REPORT INFORMATION
  Report Type: Spontaneous
  Country: US (occurrence: None)
  Receive Date: 20130305
  Receipt Date: 20130305
  Transmission Date: 20140127
  Serious: Yes (Other)
  Sender: FDA-Public Use
  Company Number: 163-21880-12080091

PATIENT
  Age: 62 Year
  Sex: Male

DRUGS (5)
  1. REVLIMIB (LENALIDOMIDE) (CAPSULES) [Suspect]
     Indication: PLASMA CELL MYELOMA
     Route: 048
     Dates: start: 20071221, end: 2008
  2. CALCIUM/MAGNESIUM/ZINC/VITAMIN D (OSTEOCARE) [Concomitant]
  3. BISOPROLOL FUMARATE (BISOPROLOL FUMARATE) [Concomitant]
  4. PRAVASTATIN SODIUM (PRAVASTATIN SODIUM) [Concomitant]
  5. AAA [Concomitant]

REACTIONS (2)
  - Blood test abnormal [None]
  - Dizziness [None]
